FAERS Safety Report 7764109-7 (Version None)
Quarter: 2011Q3

REPORT INFORMATION
  Report Type: 
  Country: None (occurrence: None)
  Receive Date: 20110921
  Receipt Date: 20110914
  Transmission Date: 20111222
  Serious: Yes (Life-Threatening, Hospitalization)
  Sender: FDA-Public Use
  Company Number: CA-JNJFOC-20110906120

PATIENT
  Age: 88 Year
  Sex: Male
  Weight: 54 kg

DRUGS (14)
  1. VITAMIN D [Concomitant]
  2. ACETYLSALICYLIC ACID SRT [Concomitant]
  3. SINEMET [Concomitant]
  4. SYNTHROID [Concomitant]
  5. SENOKOT [Concomitant]
  6. TYLENOL-500 [Concomitant]
  7. CELEXA [Concomitant]
  8. COLACE [Concomitant]
  9. GRAVOL TAB [Concomitant]
  10. POTASSIUM CHLORIDE [Concomitant]
  11. MORPHINE [Concomitant]
  12. XARELTO [Suspect]
     Indication: PRODUCT USED FOR UNKNOWN INDICATION
     Route: 048
  13. ATIVAN [Concomitant]
  14. NITROLINGUAL PUMPSPRAY [Concomitant]

REACTIONS (4)
  - HAEMOGLOBIN DECREASED [None]
  - HAEMATOMA [None]
  - ACUTE MYOCARDIAL INFARCTION [None]
  - HAEMATOCRIT DECREASED [None]
